FAERS Safety Report 25343072 (Version 1)
Quarter: 2025Q2

REPORT INFORMATION
  Report Type: Report from Study
  Country: US (occurrence: US)
  Receive Date: 20250521
  Receipt Date: 20250521
  Transmission Date: 20250717
  Serious: Yes (Other)
  Sender: MALLINCKRODT
  Company Number: US-MALLINCKRODT-MNK202500379

PATIENT
  Age: 59 Year
  Sex: Female

DRUGS (4)
  1. CORTICOTROPIN [Suspect]
     Active Substance: CORTICOTROPIN
     Indication: Rheumatoid arthritis
     Dosage: 80 UNITS
  2. CORTICOTROPIN [Suspect]
     Active Substance: CORTICOTROPIN
     Dosage: 80 UNITS
  3. METHOTREXATE [Concomitant]
     Active Substance: METHOTREXATE
  4. RITUXAN [Concomitant]
     Active Substance: RITUXIMAB

REACTIONS (10)
  - Dupuytren^s contracture [Unknown]
  - Rheumatoid arthritis [Unknown]
  - Abdominal discomfort [Unknown]
  - Dyskinesia [Not Recovered/Not Resolved]
  - Meniscus injury [Unknown]
  - Illness [Unknown]
  - Sensitivity to weather change [Unknown]
  - Abdominal distension [Unknown]
  - Weight increased [Unknown]
  - Influenza [Not Recovered/Not Resolved]

NARRATIVE: CASE EVENT DATE: 20250201
